FAERS Safety Report 9570250 (Version 4)
Quarter: 2014Q1

REPORT INFORMATION
  Report Type: Spontaneous
  Country: US (occurrence: US)
  Receive Date: 20130930
  Receipt Date: 20140102
  Transmission Date: 20141002
  Serious: No
  Sender: FDA-Public Use
  Company Number: US-AMGEN-USASP2013016621

PATIENT
  Age: 31 Year
  Sex: Female

DRUGS (3)
  1. ENBREL [Suspect]
     Indication: RHEUMATOID ARTHRITIS
     Dosage: 50 MG, QWK
     Route: 065
     Dates: start: 20050101
  2. CELEXA                             /00582602/ [Concomitant]
     Indication: DEPRESSION
     Dosage: 40 MG, DAILY
     Route: 048
  3. MULTIVITAMINS, PLAIN [Concomitant]
     Indication: GENERAL SYMPTOM
     Dosage: UNK UNK, QD
     Route: 048

REACTIONS (1)
  - Lactation disorder [Unknown]
